FAERS Safety Report 18156338 (Version 1)
Quarter: 2020Q3

REPORT INFORMATION
  Report Type: Spontaneous
  Country: US (occurrence: US)
  Receive Date: 20200815
  Receipt Date: 20200815
  Transmission Date: 20201103
  Serious: Yes (Hospitalization)
  Sender: FDA-Public Use
  Company Number: None

PATIENT
  Age: 83 Year
  Sex: Female
  Weight: 125.1 kg

DRUGS (15)
  1. ANASTROZOLE. [Concomitant]
     Active Substance: ANASTROZOLE
  2. DILTIAZEM. [Concomitant]
     Active Substance: DILTIAZEM
  3. MAGNESIUM OXIDE. [Concomitant]
     Active Substance: MAGNESIUM OXIDE
  4. ONGLYZA [Concomitant]
     Active Substance: SAXAGLIPTIN HYDROCHLORIDE
  5. IBRANCE [Suspect]
     Active Substance: PALBOCICLIB
     Indication: BREAST CANCER
     Route: 048
     Dates: start: 20200609
  6. METOPROLOL. [Concomitant]
     Active Substance: METOPROLOL
  7. GLIPIZIDE. [Concomitant]
     Active Substance: GLIPIZIDE
  8. LIPITOR [Concomitant]
     Active Substance: ATORVASTATIN CALCIUM
  9. LEVOTHYROXINE. [Concomitant]
     Active Substance: LEVOTHYROXINE
  10. FASLODEX [Concomitant]
     Active Substance: FULVESTRANT
  11. FUROSEMIDE. [Concomitant]
     Active Substance: FUROSEMIDE
  12. ELIQUIS [Concomitant]
     Active Substance: APIXABAN
  13. IRBESARTAN. [Concomitant]
     Active Substance: IRBESARTAN
  14. METFORMIN [Concomitant]
     Active Substance: METFORMIN HYDROCHLORIDE
  15. SPIRONOLACTONE. [Concomitant]
     Active Substance: SPIRONOLACTONE

REACTIONS (2)
  - Fall [None]
  - Therapy interrupted [None]

NARRATIVE: CASE EVENT DATE: 20200728
